FAERS Safety Report 7276786-8 (Version None)
Quarter: 2011Q1

REPORT INFORMATION
  Report Type: 
  Country: None (occurrence: None)
  Receive Date: 20110207
  Receipt Date: 20110128
  Transmission Date: 20110831
  Serious: Yes (Other)
  Sender: FDA-Public Use
  Company Number: AR-AMGEN-ARGSP2011002690

PATIENT
  Age: 50 Year
  Sex: Male
  Weight: 119 kg

DRUGS (5)
  1. METHOTREXATE SODIUM [Concomitant]
     Dosage: 10 MG, WEEKLY
     Route: 048
  2. ENBREL [Suspect]
     Indication: RHEUMATOID ARTHRITIS
     Dosage: 50 MG, WEEKLY
     Route: 058
     Dates: start: 20100502, end: 20101205
  3. DICLOFENAC [Concomitant]
     Indication: PAIN
     Dosage: 75 MG, ACCORDING TO PAIN
     Route: 048
  4. MEPREDNISONE [Concomitant]
     Dosage: 8 MG, 1X/DAY
     Route: 048
  5. FOLIC ACID [Concomitant]
     Dosage: 10 MG, WEEKLY
     Route: 048

REACTIONS (1)
  - INFECTED SKIN ULCER [None]
